FAERS Safety Report 4911194-3 (Version None)
Quarter: 2006Q1

REPORT INFORMATION
  Report Type: 
  Country: None (occurrence: None)
  Receive Date: 20060209
  Receipt Date: 20060125
  Transmission Date: 20060701
  Serious: Yes (Death)
  Sender: FDA-Public Use
  Company Number: 805#1#2006-00004

PATIENT
  Age: 75 Year
  Sex: Male

DRUGS (2)
  1. ALPROSTADIL [Suspect]
     Indication: ARTERIOSCLEROSIS OBLITERANS
     Dosage: 40 MCG (40 MCG 1 IN 1 DAY(S))
     Route: 041
     Dates: start: 20060116, end: 20060116
  2. PLETAL [Concomitant]

REACTIONS (1)
  - MYOCARDIAL INFARCTION [None]
